FAERS Safety Report 6772696-0 (Version None)
Quarter: 2010Q2

REPORT INFORMATION
  Report Type: 
  Country: None (occurrence: None)
  Receive Date: 20100616
  Receipt Date: 20091029
  Transmission Date: 20101027
  Serious: No
  Sender: FDA-Public Use
  Company Number: US-ASTRAZENECA-2009SE23292

PATIENT
  Age: 26 Year
  Sex: Male
  Weight: 108.9 kg

DRUGS (7)
  1. PULMICORT FLEXHALER [Suspect]
     Indication: CHRONIC OBSTRUCTIVE PULMONARY DISEASE
     Dosage: 180, 2 PUFFS BID
     Route: 055
     Dates: start: 20090101
  2. PULMICORT FLEXHALER [Suspect]
     Route: 055
  3. SYMBICORT [Suspect]
     Indication: CHRONIC OBSTRUCTIVE PULMONARY DISEASE
     Dosage: 160/4.5, 2 PUFFS
     Route: 055
     Dates: start: 20090101
  4. XANAX [Concomitant]
     Indication: ANXIETY
  5. ANTIBIOTIC- NAME NOT GIVEN [Concomitant]
     Indication: BRONCHITIS
  6. ALBUTEROL [Concomitant]
  7. PAXIL [Concomitant]

REACTIONS (4)
  - BLOOD PRESSURE INCREASED [None]
  - BRONCHITIS [None]
  - CHEST PAIN [None]
  - DYSPNOEA [None]
